FAERS Safety Report 9185637 (Version 1)
Quarter: 2013Q1

REPORT INFORMATION
  Report Type: Spontaneous
  Country: GB (occurrence: None)
  Receive Date: 20130321
  Receipt Date: 20130321
  Transmission Date: 20140127
  Serious: Yes (Other)
  Sender: FDA-Public Use
  Company Number: 2013-04754

PATIENT
  Age: 25 Year
  Sex: Female

DRUGS (1)
  1. MIRTAZAPINE [Suspect]
     Indication: DEPRESSION
     Route: 048

REACTIONS (5)
  - Suicidal ideation [None]
  - Hostility [None]
  - Impulsive behaviour [None]
  - Condition aggravated [None]
  - Suicidal behaviour [None]
